FAERS Safety Report 6676427-4 (Version None)
Quarter: 2010Q2

REPORT INFORMATION
  Report Type: 
  Country: None (occurrence: None)
  Receive Date: 20100412
  Receipt Date: 20100401
  Transmission Date: 20101027
  Serious: Yes (Hospitalization, Other)
  Sender: FDA-Public Use
  Company Number: PHHY2010FR20267

PATIENT
  Age: 6 Year
  Sex: Male

DRUGS (5)
  1. EXJADE [Suspect]
     Indication: PAIN
     Dosage: UNK
     Dates: start: 20070101, end: 20100219
  2. HYDREA [Suspect]
     Indication: PAIN
     Dosage: UNK
     Dates: start: 20080701, end: 20100219
  3. IBUPROFEN (ADVIL) [Suspect]
     Indication: PAIN
     Dosage: UNK
     Dates: start: 20090213, end: 20090214
  4. ORACILLINE [Concomitant]
  5. FOLDINE [Concomitant]

REACTIONS (7)
  - BIOPSY KIDNEY [None]
  - FOOD INTOLERANCE [None]
  - HAEMODIALYSIS [None]
  - POLYURIA [None]
  - RENAL FUNCTION TEST [None]
  - RENAL TUBULAR NECROSIS [None]
  - VOMITING [None]
